FAERS Safety Report 9585890 (Version 2)
Quarter: 2013Q4

REPORT INFORMATION
  Report Type: Spontaneous
  Country: US (occurrence: None)
  Receive Date: 20131001
  Receipt Date: 20131016
  Transmission Date: 20140711
  Serious: Yes (Other)
  Sender: FDA-Public Use
  Company Number: 2013-US-001116

PATIENT
  Age: 59 Year
  Sex: Female
  Weight: 74 kg

DRUGS (5)
  1. XYREM [Suspect]
     Indication: NARCOLEPSY
     Route: 048
     Dates: start: 20130828, end: 20130912
  2. XYREM [Suspect]
     Indication: SOMNOLENCE
     Route: 048
     Dates: start: 20130828, end: 20130912
  3. SINEMET [Suspect]
     Indication: RESTLESS LEGS SYNDROME
     Dosage: 25-100, 1-2 TABS AT BEDTIME., ORAL
     Route: 048
     Dates: start: 20130912, end: 20130912
  4. ATENOLOL (ATENOLOL) [Concomitant]
  5. HYDROCHLOROTHIAZIDE [Concomitant]

REACTIONS (12)
  - Paralysis [None]
  - Heart rate decreased [None]
  - Restless legs syndrome [None]
  - Condition aggravated [None]
  - Insomnia [None]
  - Pain [None]
  - Nausea [None]
  - Vomiting [None]
  - Diarrhoea [None]
  - Abdominal pain upper [None]
  - Pain in jaw [None]
  - Chest pain [None]
